FAERS Safety Report 9556235 (Version 2)
Quarter: 2013Q4

REPORT INFORMATION
  Report Type: Spontaneous
  Country: IL (occurrence: IL)
  Receive Date: 20130926
  Receipt Date: 20131011
  Transmission Date: 20140711
  Serious: Yes (Hospitalization)
  Sender: FDA-Public Use
  Company Number: IL-VERTEX PHARMACEUTICALS INC-2013-009923

PATIENT
  Age: 73 Year
  Sex: Female

DRUGS (1)
  1. INCIVO [Suspect]
     Indication: HEPATITIS C
     Dosage: UNK
     Route: 048
     Dates: start: 20130811

REACTIONS (4)
  - Liver function test abnormal [Unknown]
  - Fatigue [Unknown]
  - Syncope [Unknown]
  - Haemoglobin decreased [Unknown]
